FAERS Safety Report 19823094 (Version 1)
Quarter: 2021Q3

REPORT INFORMATION
  Report Type: Spontaneous
  Country: US (occurrence: US)
  Receive Date: 20210913
  Receipt Date: 20210913
  Transmission Date: 20211014
  Serious: Yes (Death, Life-Threatening, Hospitalization, Other)
  Sender: FDA-Public Use
  Company Number: US-HIKMA PHARMACEUTICALS USA INC.-US-H14001-21-55416

PATIENT
  Age: 69 Year
  Sex: Male

DRUGS (7)
  1. DOXYCYCLINE. [Suspect]
     Active Substance: DOXYCYCLINE
     Indication: DISSEMINATED CRYPTOCOCCOSIS
     Dosage: UNKNOWN
     Route: 065
  2. IBRUTINIB [Concomitant]
     Active Substance: IBRUTINIB
     Indication: WALDENSTROM^S MACROGLOBULINAEMIA
     Dosage: UNKNOWN
     Route: 065
  3. VANCOMYCIN [Suspect]
     Active Substance: VANCOMYCIN
     Indication: DISSEMINATED CRYPTOCOCCOSIS
     Dosage: UNKNOWN
     Route: 065
  4. AMPHOTERICIN [Suspect]
     Active Substance: AMPHOTERICIN B
     Indication: DISSEMINATED CRYPTOCOCCOSIS
     Dosage: UNKNOWN
     Route: 065
  5. CEFTRIAXONE. [Suspect]
     Active Substance: CEFTRIAXONE
     Indication: DISSEMINATED CRYPTOCOCCOSIS
     Dosage: UNKNOWN
     Route: 065
  6. PIPERACILLIN/TAZOBACTAM [Suspect]
     Active Substance: PIPERACILLIN SODIUM\TAZOBACTAM SODIUM
     Indication: DISSEMINATED CRYPTOCOCCOSIS
     Dosage: UNKNOWN
     Route: 065
  7. AZITHROMYCIN ANHYDROUS. [Suspect]
     Active Substance: AZITHROMYCIN ANHYDROUS
     Indication: DISSEMINATED CRYPTOCOCCOSIS
     Dosage: UNKNOWN
     Route: 065

REACTIONS (7)
  - Respiratory failure [Fatal]
  - Hypotension [Fatal]
  - Oliguria [Unknown]
  - Shock [Fatal]
  - Bacterial pericarditis [Fatal]
  - Escherichia infection [Fatal]
  - Multiple organ dysfunction syndrome [Fatal]
